FAERS Safety Report 5636227-0 (Version None)
Quarter: 2008Q1

REPORT INFORMATION
  Report Type: 
  Country: None (occurrence: None)
  Receive Date: 20080220
  Receipt Date: 20080220
  Transmission Date: 20080703
  Serious: Yes (Hospitalization)
  Sender: FDA-Public Use
  Company Number: None

PATIENT
  Sex: Male
  Weight: 65.8 kg

DRUGS (12)
  1. CAMPATH [Suspect]
  2. CYCLOPHOSPHAMIDE [Suspect]
  3. DOXORUBICIN HCL [Suspect]
  4. VINCRISTINE [Suspect]
  5. PREDNISOLONE [Suspect]
  6. PRINIVIL [Concomitant]
  7. ATIVAN [Concomitant]
  8. ZOFRAN [Concomitant]
  9. BACTRIM [Concomitant]
  10. DYAZIDE/HCTZ [Concomitant]
  11. VALTREX [Concomitant]
  12. ALLOPURINOL [Concomitant]

REACTIONS (3)
  - BODY TEMPERATURE INCREASED [None]
  - CHILLS [None]
  - NAUSEA [None]
